FAERS Safety Report 10351304 (Version 4)
Quarter: 2015Q1

REPORT INFORMATION
  Report Type: Report from Study
  Country: JP (occurrence: JP)
  Receive Date: 20140730
  Receipt Date: 20150127
  Transmission Date: 20150720
  Serious: No
  Sender: FDA-Public Use
  Company Number: JP-GLAXOSMITHKLINE-B1013110A

PATIENT
  Age: 84 Year
  Sex: Female

DRUGS (15)
  1. PREDONINE [Concomitant]
     Active Substance: PREDNISOLONE\PREDNISOLONE ACETATE\PREDNISOLONE SODIUM SUCCINATE
     Indication: INTERSTITIAL LUNG DISEASE
     Dosage: 40 MG, QD
     Dates: start: 20140602, end: 20140603
  2. PREDONINE [Concomitant]
     Active Substance: PREDNISOLONE\PREDNISOLONE ACETATE\PREDNISOLONE SODIUM SUCCINATE
     Dosage: 35 MG, QD
     Dates: start: 20140604, end: 20140610
  3. PREDONINE [Concomitant]
     Active Substance: PREDNISOLONE\PREDNISOLONE ACETATE\PREDNISOLONE SODIUM SUCCINATE
     Dosage: 20 MG, QD
     Dates: start: 20140723, end: 20140812
  4. SENNOSIDE [Concomitant]
     Active Substance: SENNOSIDES
     Indication: CONSTIPATION
     Dosage: 24 MG, QD
     Dates: start: 20140625
  5. PROCYLIN [Concomitant]
     Active Substance: BERAPROST SODIUM
     Indication: PERIPHERAL VASCULAR DISORDER
     Dosage: 20 ?G, TID
     Dates: start: 20140623
  6. PREDONINE [Concomitant]
     Active Substance: PREDNISOLONE\PREDNISOLONE ACETATE\PREDNISOLONE SODIUM SUCCINATE
     Dosage: 30 MG, QD
     Dates: start: 20140611, end: 20140624
  7. LOXOPROFEN NA [Suspect]
     Active Substance: LOXOPROFEN SODIUM
     Indication: BACK PAIN
     Dosage: 60 MG, QD
     Dates: start: 20140623
  8. NICO [Concomitant]
     Indication: PERIPHERAL VASCULAR DISORDER
     Dosage: 3 DF, QD
     Dates: start: 20140623
  9. PREDONINE [Concomitant]
     Active Substance: PREDNISOLONE\PREDNISOLONE ACETATE\PREDNISOLONE SODIUM SUCCINATE
     Dosage: 22.5 MG, QD
     Dates: start: 20140709, end: 20140722
  10. FAMOTIDINE D [Concomitant]
     Active Substance: FAMOTIDINE
     Dosage: 20 MG, QD
     Dates: start: 20140617
  11. CYPOLINE [Concomitant]
     Indication: OSTEOPOROSIS
     Dosage: 2.00 MG, BID
     Dates: start: 20140623
  12. ATOVAQUONE. [Suspect]
     Active Substance: ATOVAQUONE
     Indication: PNEUMOCYSTIS JIROVECII PNEUMONIA
     Dosage: 1500 MG, QD
     Route: 048
     Dates: start: 20140627, end: 20140812
  13. PREDONINE [Concomitant]
     Active Substance: PREDNISOLONE\PREDNISOLONE ACETATE\PREDNISOLONE SODIUM SUCCINATE
     Dosage: 25 MG, QD
     Dates: start: 20140625, end: 20140708
  14. FUROSEMIDE. [Concomitant]
     Active Substance: FUROSEMIDE
     Indication: RENAL FAILURE
     Dosage: 20 MG, QD
     Dates: start: 20140625
  15. ONEALFA [Concomitant]
     Active Substance: ALFACALCIDOL
     Indication: OSTEOPOROSIS
     Dosage: 0.5 ?G, BID
     Dates: start: 20140623

REACTIONS (2)
  - Blood creatinine increased [Unknown]
  - Asteatosis [Recovering/Resolving]

NARRATIVE: CASE EVENT DATE: 20140707
